FAERS Safety Report 9128573 (Version 1)
Quarter: 2013Q1

REPORT INFORMATION
  Report Type: Spontaneous
  Country: US (occurrence: US)
  Receive Date: 20130125
  Receipt Date: 20130125
  Transmission Date: 20140127
  Serious: No
  Sender: FDA-Public Use
  Company Number: US-BAYER-2013-007626

PATIENT
  Age: 73 Year
  Sex: Female
  Weight: 48 kg

DRUGS (3)
  1. ALEVE CAPLET/TABLET,MIDOL EXTENDED RELIEF CAPLET [Suspect]
  2. SLEEPING PILL [Concomitant]
  3. TRAMADOL [Concomitant]

REACTIONS (1)
  - Inappropriate schedule of drug administration [None]
